FAERS Safety Report 10717872 (Version 5)
Quarter: 2015Q4

REPORT INFORMATION
  Report Type: Report from Study
  Country: BE (occurrence: BE)
  Receive Date: 20150116
  Receipt Date: 20151105
  Transmission Date: 20160304
  Serious: Yes (Hospitalization)
  Sender: FDA-Public Use
  Company Number: BE-ABBVIE-14P-013-1196005-00

PATIENT
  Age: 74 Year
  Sex: Male

DRUGS (15)
  1. DUODOPA [Suspect]
     Active Substance: CARBIDOPA\LEVODOPA
     Dosage: 17-DEC-2014
     Route: 050
     Dates: start: 20141217, end: 20150114
  2. STALEVO [Concomitant]
     Active Substance: CARBIDOPA\ENTACAPONE\LEVODOPA
     Indication: PARKINSON^S DISEASE
     Dosage: AT 10AM AND 4PM
     Route: 048
  3. DUODOPA [Suspect]
     Active Substance: CARBIDOPA\LEVODOPA
     Dosage: DOSAGE CONTINUOUSLY MONITORED AND ADJUSTED
     Route: 050
     Dates: start: 20131205, end: 20131218
  4. DUODOPA [Suspect]
     Active Substance: CARBIDOPA\LEVODOPA
     Route: 050
     Dates: start: 20140127, end: 20140317
  5. DUODOPA [Suspect]
     Active Substance: CARBIDOPA\LEVODOPA
     Dosage: AM = 5 ML, CONTIN DOSE = 1.8 ML/H DURING 16H, EXTRA DOSE = 1 ML
     Route: 050
     Dates: start: 20141006, end: 20141117
  6. DUODOPA [Suspect]
     Active Substance: CARBIDOPA\LEVODOPA
     Dosage: AM = 5 ML, CD = 2.1 ML/H DURING 16H, ED = 1 ML
     Route: 050
     Dates: start: 20141124, end: 20141217
  7. STALEVO [Concomitant]
     Active Substance: CARBIDOPA\ENTACAPONE\LEVODOPA
     Indication: PARKINSON^S DISEASE
     Dosage: AT 6AM,9AM,12PM,3PM,6PM AND 9PM
     Route: 048
  8. DUODOPA [Suspect]
     Active Substance: CARBIDOPA\LEVODOPA
     Dosage: AM = 5 ML, CD = 1.9 ML/H DURING 16H, ED = 1 ML
     Route: 050
     Dates: start: 20141117, end: 20141124
  9. DUODOPA [Suspect]
     Active Substance: CARBIDOPA\LEVODOPA
     Dosage: AM = 5 ML, CONTIN DOSE = 1.4 ML/H DURING 16H, EXTRA DOSE = 1 ML
     Route: 050
     Dates: start: 20140317, end: 20140924
  10. DUODOPA [Suspect]
     Active Substance: CARBIDOPA\LEVODOPA
     Dosage: AM = 5 ML, CONTIN DOSE = 1.6 ML/H DURING 16H, EXTRA DOSE = 1 ML
     Route: 050
     Dates: start: 20140924
  11. DUODOPA [Suspect]
     Active Substance: CARBIDOPA\LEVODOPA
     Dosage: AM=5ML; CD=2.6ML/HR DURING 16HRS ; ED=1.5ML
     Route: 050
     Dates: start: 20150924
  12. DUODOPA [Suspect]
     Active Substance: CARBIDOPA\LEVODOPA
     Indication: PARKINSON^S DISEASE
     Dosage: AM 8ML, CONTIN 3.5ML/H IN 16HRS, ED 2ML
     Route: 050
     Dates: start: 20131203, end: 20131205
  13. DUODOPA [Suspect]
     Active Substance: CARBIDOPA\LEVODOPA
     Dosage: AM 8ML, CONTIN 4.6ML/H IN 16HRS, ED 2ML
     Route: 050
     Dates: start: 20131218, end: 201401
  14. DUODOPA [Suspect]
     Active Substance: CARBIDOPA\LEVODOPA
     Dosage: AM DOSE= 5ML, CD= 1.5ML/H DURING 16HRS, ED 1ML
     Route: 050
     Dates: start: 20140125
  15. DUODOPA [Suspect]
     Active Substance: CARBIDOPA\LEVODOPA
     Dosage: AM DOSE=5ML, CD=2.4ML/H FOR 16HRS AND ED=1.5ML
     Route: 050
     Dates: start: 20150114, end: 20150924

REACTIONS (16)
  - Stress [Unknown]
  - Gait disturbance [Unknown]
  - Asthenia [Unknown]
  - Freezing phenomenon [Not Recovered/Not Resolved]
  - Freezing phenomenon [Recovering/Resolving]
  - Wound infection staphylococcal [Unknown]
  - Fall [Unknown]
  - Hypokinesia [Unknown]
  - Dysarthria [Unknown]
  - Stoma site hypergranulation [Not Recovered/Not Resolved]
  - Staphylococcal infection [Not Recovered/Not Resolved]
  - Cogwheel rigidity [Unknown]
  - Underdose [Unknown]
  - Bradykinesia [Unknown]
  - Catheter site discharge [Unknown]
  - Dysphonia [Recovering/Resolving]

NARRATIVE: CASE EVENT DATE: 201501
